FAERS Safety Report 25421349 (Version 1)
Quarter: 2025Q2

REPORT INFORMATION
  Report Type: Other
  Country: US (occurrence: US)
  Receive Date: 20250611
  Receipt Date: 20250611
  Transmission Date: 20250717
  Serious: Yes (Death, Hospitalization)
  Sender: ALVOGEN
  Company Number: US-ALVOGEN-2025098103

PATIENT
  Age: 23 Year
  Sex: Female

DRUGS (18)
  1. OXYCODONE [Suspect]
     Active Substance: OXYCODONE
     Indication: Pain
  2. OXYCODONE [Suspect]
     Active Substance: OXYCODONE
     Indication: Pain
  3. VALPROIC ACID [Suspect]
     Active Substance: VALPROIC ACID
     Indication: Agitation
  4. LITHIUM [Suspect]
     Active Substance: LITHIUM
     Indication: Agitation
  5. LITHIUM [Suspect]
     Active Substance: LITHIUM
     Indication: Agitation
  6. LITHIUM [Suspect]
     Active Substance: LITHIUM
     Indication: Agitation
  7. PREGABALIN [Suspect]
     Active Substance: PREGABALIN
     Indication: Agitation
  8. ISONIAZID [Suspect]
     Active Substance: ISONIAZID
     Indication: Pulmonary tuberculosis
  9. HALOPERIDOL [Concomitant]
     Active Substance: HALOPERIDOL
     Indication: Agitation
     Route: 042
  10. RIFAMPIN [Concomitant]
     Active Substance: RIFAMPIN
     Indication: Pulmonary tuberculosis
  11. PYRAZINAMIDE [Concomitant]
     Active Substance: PYRAZINAMIDE
     Indication: Pulmonary tuberculosis
  12. ETHAMBUTOL [Concomitant]
     Active Substance: ETHAMBUTOL HYDROCHLORIDE
     Indication: Pulmonary tuberculosis
  13. DEXMEDETOMIDINE [Concomitant]
     Active Substance: DEXMEDETOMIDINE
     Indication: Sedation
  14. PROPOFOL [Concomitant]
     Active Substance: PROPOFOL
     Indication: Sedation
  15. HYDROMORPHONE [Concomitant]
     Active Substance: HYDROMORPHONE
     Indication: Sedation
  16. GUANFACINE [Concomitant]
     Active Substance: GUANFACINE
     Indication: Sedation
  17. OLANZAPINE [Concomitant]
     Active Substance: OLANZAPINE
     Indication: Sedation
  18. LORAZEPAM [Concomitant]
     Active Substance: LORAZEPAM
     Indication: Sedation

REACTIONS (2)
  - Toxicity to various agents [Fatal]
  - Serotonin syndrome [Fatal]
